FAERS Safety Report 9011528 (Version 1)
Quarter: 2013Q1

REPORT INFORMATION
  Report Type: Spontaneous
  Country: US (occurrence: US)
  Receive Date: 20130108
  Receipt Date: 20130108
  Transmission Date: 20140127
  Serious: Yes (Other)
  Sender: FDA-Public Use
  Company Number: US-BRISTOL-MYERS SQUIBB COMPANY-17253733

PATIENT
  Age: 84 Year
  Sex: Female

DRUGS (1)
  1. YERVOY [Suspect]

REACTIONS (3)
  - Thrombosis [Unknown]
  - Dyspnoea [Unknown]
  - Fatigue [Unknown]
